FAERS Safety Report 12227251 (Version 7)
Quarter: 2020Q3

REPORT INFORMATION
  Report Type: Spontaneous
  Country: US (occurrence: US)
  Receive Date: 20160331
  Receipt Date: 20200804
  Transmission Date: 20201102
  Serious: Yes (Other)
  Sender: FDA-Public Use
  Company Number: US-PFIZER INC-2016148718

PATIENT
  Age: 82 Year
  Sex: Female

DRUGS (4)
  1. LYRICA [Suspect]
     Active Substance: PREGABALIN
     Indication: NEUROPATHY PERIPHERAL
     Dosage: ^75MG IN THE MORNING^, TOOK ONE AT NIGHT
     Route: 048
     Dates: start: 2016
  2. LYRICA [Suspect]
     Active Substance: PREGABALIN
     Dosage: 25 MG
  3. LYRICA [Suspect]
     Active Substance: PREGABALIN
     Dosage: 25 MG, 3X/DAY
     Route: 048
  4. LYRICA [Suspect]
     Active Substance: PREGABALIN
     Dosage: 50 MG

REACTIONS (5)
  - Drug intolerance [Unknown]
  - Poor peripheral circulation [Unknown]
  - Intentional product misuse [Unknown]
  - Ankle fracture [Recovering/Resolving]
  - Arterial occlusive disease [Unknown]

NARRATIVE: CASE EVENT DATE: 2018
